FAERS Safety Report 7644048-2 (Version None)
Quarter: 2011Q3

REPORT INFORMATION
  Report Type: 
  Country: None (occurrence: None)
  Receive Date: 20110729
  Receipt Date: 20110721
  Transmission Date: 20111222
  Serious: Yes (Other)
  Sender: FDA-Public Use
  Company Number: US-ABBOTT-11P-163-0841229-00

PATIENT
  Sex: Female
  Weight: 75.364 kg

DRUGS (18)
  1. HUMIRA [Suspect]
     Indication: PSORIATIC ARTHROPATHY
     Dates: start: 20071001, end: 20100601
  2. LOVASTATIN [Concomitant]
     Indication: BLOOD CHOLESTEROL INCREASED
  3. TOPAMAX [Concomitant]
     Indication: HEADACHE
  4. ZANAFLEX [Concomitant]
     Indication: SYRINGOMYELIA
  5. LORTAB [Concomitant]
     Indication: PAIN
  6. HYDROCHLOROTHIAZIDE [Concomitant]
     Indication: HYPERTENSION
  7. ZANAFLEX [Concomitant]
     Indication: SPINAL CORD INJURY
  8. NEURONTIN [Concomitant]
     Indication: PSORIATIC ARTHROPATHY
     Dosage: 600 QUID
  9. AMBIEN [Concomitant]
     Indication: INSOMNIA
  10. HUMIRA [Suspect]
     Dates: start: 20100101, end: 20110501
  11. HUMIRA [Suspect]
     Dates: start: 20110722
  12. ENALAPRIL MALEATE [Concomitant]
     Indication: HYPERTENSION
  13. TOPAMAX [Concomitant]
     Indication: TRIGEMINAL NEURALGIA
  14. VITAMIN TAB [Concomitant]
     Indication: VITAMIN SUPPLEMENTATION
  15. SOMA [Concomitant]
     Indication: MUSCLE SPASMS
  16. METHOTREXATE [Concomitant]
     Indication: PSORIATIC ARTHROPATHY
  17. UNNAMED HORMONE [Concomitant]
     Indication: PRODUCT USED FOR UNKNOWN INDICATION
  18. CYMBALTA [Concomitant]
     Indication: FIBROMYALGIA

REACTIONS (5)
  - SINUS DISORDER [None]
  - DYSGEUSIA [None]
  - HEADACHE [None]
  - MORTON'S NEUROMA [None]
  - WEIGHT DECREASED [None]
